FAERS Safety Report 13840501 (Version 1)
Quarter: 2017Q3

REPORT INFORMATION
  Report Type: Spontaneous
  Country: IT (occurrence: IT)
  Receive Date: 20170807
  Receipt Date: 20170807
  Transmission Date: 20171127
  Serious: Yes (Life-Threatening)
  Sender: FDA-Public Use
  Company Number: IT-PFIZER INC-2017337053

PATIENT
  Age: 33 Year
  Sex: Female

DRUGS (2)
  1. ALPRAZOLAM. [Suspect]
     Active Substance: ALPRAZOLAM
     Dosage: 20 MG, TOTAL
     Route: 048
     Dates: start: 20170717
  2. RISPERDAL [Suspect]
     Active Substance: RISPERIDONE
     Dosage: 20 MG, TOTAL
     Route: 048
     Dates: start: 20170717

REACTIONS (3)
  - Overdose [Unknown]
  - Coma [Unknown]
  - Intentional self-injury [Unknown]

NARRATIVE: CASE EVENT DATE: 20170717
